FAERS Safety Report 7591259-0 (Version None)
Quarter: 2011Q3

REPORT INFORMATION
  Report Type: 
  Country: None (occurrence: None)
  Receive Date: 20110706
  Receipt Date: 20110628
  Transmission Date: 20111222
  Serious: No
  Sender: FDA-Public Use
  Company Number: US-BIOGENIDEC-2011BI017271

PATIENT
  Sex: Male

DRUGS (2)
  1. AVONEX [Concomitant]
     Indication: MULTIPLE SCLEROSIS
     Route: 030
     Dates: start: 20090501
  2. TYSABRI [Suspect]
     Indication: MULTIPLE SCLEROSIS
     Route: 042
     Dates: start: 20090507

REACTIONS (7)
  - BACK PAIN [None]
  - TINNITUS [None]
  - PERIPHERAL COLDNESS [None]
  - ASTHENIA [None]
  - CARDIOVASCULAR DISORDER [None]
  - DEAFNESS [None]
  - MUSCULOSKELETAL DISORDER [None]
